FAERS Safety Report 4582249-0 (Version None)
Quarter: 2005Q1

REPORT INFORMATION
  Report Type: 
  Country: None (occurrence: None)
  Receive Date: 20050127
  Receipt Date: 20040907
  Transmission Date: 20050727
  Serious: No
  Sender: FDA-Public Use
  Company Number: USA040977487

PATIENT
  Age: 8 Year
  Sex: Male
  Weight: 27 kg

DRUGS (2)
  1. STRATTERA [Suspect]
     Indication: AFFECTIVE DISORDER
     Dosage: 25 MG/L DAY
     Dates: start: 20040801
  2. LAMICTAL [Concomitant]

REACTIONS (2)
  - AFFECT LABILITY [None]
  - DRUG INEFFECTIVE [None]
